FAERS Safety Report 9511160 (Version 1)
Quarter: 2013Q3

REPORT INFORMATION
  Report Type: Spontaneous
  Country: GB (occurrence: GB)
  Receive Date: 20130910
  Receipt Date: 20130910
  Transmission Date: 20140515
  Serious: Yes (Disabling)
  Sender: FDA-Public Use
  Company Number: GB-ACCORD-019267

PATIENT
  Age: 73 Year
  Sex: Female
  Weight: 102 kg

DRUGS (5)
  1. LETROZOLE [Suspect]
     Indication: BREAST CANCER
     Route: 048
     Dates: start: 201202
  2. VALPROATE [Concomitant]
     Indication: BIPOLAR DISORDER
     Route: 048
     Dates: start: 2007
  3. THYROXINE [Concomitant]
     Route: 048
  4. FUROSEMIDE [Concomitant]
     Route: 048
  5. ASPIRIN [Concomitant]
     Route: 048

REACTIONS (1)
  - Confusional state [Recovered/Resolved]
